FAERS Safety Report 9626733 (Version 2)
Quarter: 2013Q4

REPORT INFORMATION
  Report Type: Spontaneous
  Country: US (occurrence: US)
  Receive Date: 20131016
  Receipt Date: 20131211
  Transmission Date: 20140711
  Serious: No
  Sender: FDA-Public Use
  Company Number: US-009507513-1309USA007262

PATIENT
  Age: 58 Year
  Sex: Male

DRUGS (5)
  1. PEGINTRON [Suspect]
     Indication: HEPATITIS C
     Dosage: REDIPEN
     Dates: start: 20130911, end: 2013
  2. PEGINTRON [Suspect]
     Dosage: UNK
     Dates: start: 20131111
  3. REBETOL [Suspect]
     Indication: HEPATITIS C
     Dosage: UNK
     Route: 048
     Dates: start: 20130911, end: 2013
  4. REBETOL [Suspect]
     Dosage: UNK
     Route: 048
     Dates: start: 20131111
  5. INCIVEK [Suspect]
     Indication: HEPATITIS C
     Dosage: UNK
     Dates: start: 20130911, end: 20130918

REACTIONS (3)
  - Memory impairment [Unknown]
  - Erythema [Unknown]
  - Drug hypersensitivity [Unknown]
